FAERS Safety Report 15556133 (Version 1)
Quarter: 2018Q4

REPORT INFORMATION
  Report Type: Spontaneous
  Country: US (occurrence: US)
  Receive Date: 20181026
  Receipt Date: 20181026
  Transmission Date: 20190205
  Serious: No
  Sender: FDA-Public Use
  Company Number: US-ALLERGAN-1763768US

PATIENT
  Sex: Male

DRUGS (2)
  1. ALPHAGAN P [Suspect]
     Active Substance: BRIMONIDINE TARTRATE
     Indication: OCULAR HYPERTENSION
     Dosage: 2 GTT, TID
     Route: 047
     Dates: start: 20090105, end: 20091008
  2. ALPHAGAN P [Suspect]
     Active Substance: BRIMONIDINE TARTRATE
     Indication: OPTIC DISC DRUSEN
     Dosage: UNK, BID
     Route: 047
     Dates: start: 20091008

REACTIONS (2)
  - Product use in unapproved indication [Unknown]
  - Somnolence [Recovered/Resolved]
